FAERS Safety Report 15175489 (Version 1)
Quarter: 2018Q3

REPORT INFORMATION
  Report Type: Report from Study
  Country: US (occurrence: US)
  Receive Date: 20180720
  Receipt Date: 20180720
  Transmission Date: 20181010
  Serious: No
  Sender: FDA-Public Use
  Company Number: US-AMGEN-USASL2018066229

PATIENT
  Age: 51 Year
  Sex: Male

DRUGS (2)
  1. REPATHA [Suspect]
     Active Substance: EVOLOCUMAB
     Indication: BLOOD CHOLESTEROL INCREASED
     Dosage: 140 MG, QMO
     Route: 065
  2. REPATHA [Suspect]
     Active Substance: EVOLOCUMAB
     Indication: HYPERCHOLESTEROLAEMIA
     Dosage: 140 MG, Q2WK
     Route: 065

REACTIONS (10)
  - Influenza like illness [Recovered/Resolved]
  - Throat irritation [Unknown]
  - Pain [Unknown]
  - Headache [Unknown]
  - Cough [Recovered/Resolved]
  - Pyrexia [Unknown]
  - Fatigue [Unknown]
  - Adverse event [Unknown]
  - Nasal congestion [Unknown]
  - Musculoskeletal disorder [Unknown]
